FAERS Safety Report 25081153 (Version 1)
Quarter: 2025Q1

REPORT INFORMATION
  Report Type: Spontaneous
  Country: US (occurrence: US)
  Receive Date: 20250315
  Receipt Date: 20250315
  Transmission Date: 20250409
  Serious: No
  Sender: ASCEND THERAPEUTICS US, LLC
  Company Number: US-Ascend Therapeutics US, LLC-2172950

PATIENT
  Sex: Female

DRUGS (2)
  1. ANDROGEL [Suspect]
     Active Substance: TESTOSTERONE
     Indication: Androgen replacement therapy
  2. TESTOSTERONE [Suspect]
     Active Substance: TESTOSTERONE

REACTIONS (1)
  - Off label use [Unknown]
